FAERS Safety Report 19494842 (Version 1)
Quarter: 2021Q3

REPORT INFORMATION
  Report Type: Spontaneous
  Country: US (occurrence: US)
  Receive Date: 20210705
  Receipt Date: 20210705
  Transmission Date: 20211014
  Serious: Yes (Hospitalization)
  Sender: FDA-Public Use
  Company Number: US-GW PHARMA-202106USGW03182

PATIENT

DRUGS (1)
  1. EPIDIOLEX [Suspect]
     Active Substance: CANNABIDIOL
     Indication: PRODUCT USED FOR UNKNOWN INDICATION
     Dosage: 28.94 MG/KG/DAY, 550 MILLIGRAM, QD (200 MG IN AM, 150 IN AFTERNOON AND 200 MILLIGRAM IN PM)
     Route: 048
     Dates: start: 20201021

REACTIONS (4)
  - Mouth haemorrhage [Recovering/Resolving]
  - Lung disorder [Recovering/Resolving]
  - Prescribed overdose [Unknown]
  - Off label use [Unknown]
